FAERS Safety Report 6700247-5 (Version None)
Quarter: 2010Q2

REPORT INFORMATION
  Report Type: 
  Country: None (occurrence: None)
  Receive Date: 20100426
  Receipt Date: 20090818
  Transmission Date: 20101027
  Serious: Yes (Disabling)
  Sender: FDA-Public Use
  Company Number: WAES 0908USA03027

PATIENT
  Age: 55 Year
  Sex: Male
  Weight: 58.9676 kg

DRUGS (8)
  1. SINGULAIR [Suspect]
     Indication: ASTHMA
     Dosage: 10 MG/DAILY/PO ; 10 MG/DAILY/PO
     Route: 048
     Dates: start: 20060101, end: 20080301
  2. SINGULAIR [Suspect]
     Indication: SEASONAL ALLERGY
     Dosage: 10 MG/DAILY/PO ; 10 MG/DAILY/PO
     Route: 048
     Dates: start: 20060101, end: 20080301
  3. SINGULAIR [Suspect]
     Indication: ASTHMA
     Dosage: 10 MG/DAILY/PO ; 10 MG/DAILY/PO
     Route: 048
     Dates: start: 20080401, end: 20080501
  4. SINGULAIR [Suspect]
     Indication: SEASONAL ALLERGY
     Dosage: 10 MG/DAILY/PO ; 10 MG/DAILY/PO
     Route: 048
     Dates: start: 20080401, end: 20080501
  5. ADVAIR DISKUS 100/50 [Concomitant]
  6. ALLEGRA [Concomitant]
  7. FLOVENT [Concomitant]
  8. ALBUTEROL [Concomitant]

REACTIONS (3)
  - DEPRESSED MOOD [None]
  - DEPRESSION [None]
  - MOOD ALTERED [None]
